FAERS Safety Report 4730773-X (Version None)
Quarter: 2005Q3

REPORT INFORMATION
  Report Type: 
  Country: None (occurrence: None)
  Receive Date: 20050725
  Receipt Date: 20050517
  Transmission Date: 20060218
  Serious: No
  Sender: FDA-Public Use
  Company Number: USA050598268

PATIENT
  Age: 31 Year
  Sex: Male
  Weight: 127 kg

DRUGS (2)
  1. STRATTERA [Suspect]
     Dosage: 100 MG/1 DAY
     Dates: start: 20040101
  2. FLONASE [Concomitant]

REACTIONS (2)
  - DRUG INEFFECTIVE [None]
  - WEIGHT INCREASED [None]
